FAERS Safety Report 6005602-7 (Version None)
Quarter: 2008Q4

REPORT INFORMATION
  Report Type: 
  Country: None (occurrence: None)
  Receive Date: 20081217
  Receipt Date: 20081205
  Transmission Date: 20090506
  Serious: Yes (Hospitalization)
  Sender: FDA-Public Use
  Company Number: ES-PFIZER INC-2007098404

PATIENT

DRUGS (2)
  1. SUNITINIB MALATE [Suspect]
     Indication: BREAST CANCER
     Dosage: 37.5 MG, 1X/DAY
     Route: 048
     Dates: start: 20071016, end: 20071120
  2. *CAPECITABINE [Suspect]
     Indication: BREAST CANCER
     Dosage: 1550 MG, 2X/DAY
     Route: 048
     Dates: start: 20071016, end: 20071211

REACTIONS (3)
  - HYPERBILIRUBINAEMIA [None]
  - JAUNDICE CHOLESTATIC [None]
  - THROMBOCYTOPENIA [None]
